FAERS Safety Report 11148322 (Version 1)
Quarter: 2015Q2

REPORT INFORMATION
  Report Type: Spontaneous
  Country: US (occurrence: US)
  Receive Date: 20150529
  Receipt Date: 20150529
  Transmission Date: 20150821
  Serious: No
  Sender: FDA-Public Use
  Company Number: US-009507513-1505USA010411

PATIENT
  Age: 67 Year
  Sex: Female

DRUGS (2)
  1. ZETIA [Suspect]
     Active Substance: EZETIMIBE
     Dosage: 10 MG, DAILY
     Route: 048
     Dates: start: 20150501
  2. ZETIA [Suspect]
     Active Substance: EZETIMIBE
     Indication: BLOOD CHOLESTEROL INCREASED
     Dosage: 10 MG, DAILY
     Route: 048
     Dates: start: 201412, end: 2015

REACTIONS (2)
  - Blood urine [Recovered/Resolved]
  - Blood urine [Recovered/Resolved]

NARRATIVE: CASE EVENT DATE: 201501
